FAERS Safety Report 5134278-6 (Version None)
Quarter: 2006Q4

REPORT INFORMATION
  Report Type: 
  Country: None (occurrence: None)
  Receive Date: 20061019
  Receipt Date: 20061013
  Transmission Date: 20070319
  Serious: Yes (Other)
  Sender: FDA-Public Use
  Company Number: SPVI-2006-01170

PATIENT
  Sex: Female

DRUGS (1)
  1. FOSRENOL [Suspect]
     Dosage: ORAL
     Route: 048

REACTIONS (2)
  - LOSS OF CONSCIOUSNESS [None]
  - VOMITING [None]
